FAERS Safety Report 22526348 (Version 1)
Quarter: 2023Q2

REPORT INFORMATION
  Report Type: Spontaneous
  Country: US (occurrence: None)
  Receive Date: 20230605
  Receipt Date: 20230605
  Transmission Date: 20230721
  Serious: Yes (Hospitalization)
  Sender: FDA-Public Use
  Company Number: None

PATIENT
  Sex: Female

DRUGS (27)
  1. GAMMAGARD [Suspect]
     Active Substance: HUMAN IMMUNOGLOBULIN G
     Indication: Immunodeficiency
     Dosage: 5 GM/50ML INJECTION??INFUSE 15 GRAMS (150 ML) INTRAVENOUSLY ONCE A MONTH?
     Route: 042
     Dates: start: 20180213
  2. ADVAIR DISKU AER [Concomitant]
  3. ALBUTEROL AER HFA [Concomitant]
  4. CLINDAMYCIN [Concomitant]
     Active Substance: CLINDAMYCIN
  5. DIPHENHYDRAM [Concomitant]
  6. ELIQUIS [Concomitant]
     Active Substance: APIXABAN
  7. EPINEPHRINE [Concomitant]
     Active Substance: EPINEPHRINE
  8. FLUCONAZOLE [Concomitant]
     Active Substance: FLUCONAZOLE
  9. HEP LOCK SYR [Concomitant]
  10. HYDROMOPHON [Concomitant]
  11. LORAZEPAM [Concomitant]
     Active Substance: LORAZEPAM
  12. METFORMIN [Concomitant]
     Active Substance: METFORMIN HYDROCHLORIDE
  13. METHYLPREDNISOLONE [Concomitant]
     Active Substance: METHYLPREDNISOLONE
  14. MULTI-VITAMIN [Concomitant]
     Active Substance: .ALPHA.-TOCOPHEROL ACETATE, DL-\ASCORBIC ACID\CYANOCOBALAMIN\FLUORIDE ION\FOLIC ACID\NIACIN\PYRIDOXI
  15. NYSTATIN CRE [Concomitant]
  16. PANTOPRAZOLE [Concomitant]
     Active Substance: PANTOPRAZOLE
  17. PREDNISONE [Concomitant]
     Active Substance: PREDNISONE
  18. RISPERIDONE [Concomitant]
     Active Substance: RISPERIDONE
  19. SANTYL OIN [Concomitant]
  20. SODIUM CHLORIDE [Concomitant]
     Active Substance: SODIUM CHLORIDE
  21. FLSH SYR [Concomitant]
  22. STRL FLSH [Concomitant]
  23. TIZANIDINE [Concomitant]
     Active Substance: TIZANIDINE
  24. TRAMADOL HCL [Concomitant]
     Active Substance: TRAMADOL HYDROCHLORIDE
  25. TRELEGY AER [Concomitant]
  26. YALE NEEDLES MIS [Concomitant]
  27. YASMIN [Concomitant]
     Active Substance: DROSPIRENONE\ETHINYL ESTRADIOL

REACTIONS (2)
  - Cardiac operation [None]
  - Therapy interrupted [None]
